FAERS Safety Report 9260887 (Version 1)
Quarter: 2013Q2

REPORT INFORMATION
  Report Type: Spontaneous
  Country: US (occurrence: US)
  Receive Date: 20130429
  Receipt Date: 20130429
  Transmission Date: 20140414
  Serious: No
  Sender: FDA-Public Use
  Company Number: US-AMGEN-USASP2011059461

PATIENT
  Sex: Female

DRUGS (1)
  1. SENSIPAR [Suspect]
     Indication: HYPERPARATHYROIDISM PRIMARY
     Dosage: 30 UNK, TID
     Dates: start: 20110928, end: 20111104

REACTIONS (2)
  - Hepatic enzyme increased [Recovered/Resolved]
  - Blood calcium decreased [Unknown]
